FAERS Safety Report 8449160-6 (Version None)
Quarter: 2012Q2

REPORT INFORMATION
  Report Type: 
  Country: None (occurrence: None)
  Receive Date: 20120619
  Receipt Date: 20120611
  Transmission Date: 20120825
  Serious: Yes (Hospitalization, Other)
  Sender: FDA-Public Use
  Company Number: FR-FRI-1000031447

PATIENT
  Age: 13 Year
  Sex: Female

DRUGS (1)
  1. DILTIAZEM HYDROCHOLORIDE [Suspect]
     Dosage: 4.2 GRAMS

REACTIONS (4)
  - TOXICITY TO VARIOUS AGENTS [None]
  - INTENTIONAL OVERDOSE [None]
  - CARDIOGENIC SHOCK [None]
  - CLONIC CONVULSION [None]
